FAERS Safety Report 24622731 (Version 1)
Quarter: 2024Q4

REPORT INFORMATION
  Report Type: Spontaneous
  Country: ES (occurrence: ES)
  Receive Date: 20241115
  Receipt Date: 20241115
  Transmission Date: 20250115
  Serious: Yes (Hospitalization)
  Sender: ACCORD
  Company Number: None

PATIENT
  Sex: Male
  Weight: 56.7 kg

DRUGS (12)
  1. CARBOPLATIN [Suspect]
     Active Substance: CARBOPLATIN
     Indication: Transitional cell carcinoma
     Dosage: 294 MG D1 EVERY 21 DAYS
     Dates: start: 20240416, end: 20240416
  2. GEMCITABINE [Suspect]
     Active Substance: GEMCITABINE
     Indication: Transitional cell carcinoma
     Dosage: 1600 MG D1 AND D8 EVERY 21 DAYS
     Dates: start: 20240416, end: 20240423
  3. ASPIRIN [Concomitant]
     Active Substance: ASPIRIN
     Indication: Dilated cardiomyopathy
     Dosage: UNK
     Dates: start: 20231024
  4. OLODATEROL\TIOTROPIUM [Concomitant]
     Active Substance: OLODATEROL\TIOTROPIUM
     Indication: Chronic obstructive pulmonary disease
     Dosage: UNK
     Dates: start: 20221230
  5. TAMSULOSIN HYDROCHLORIDE [Concomitant]
     Active Substance: TAMSULOSIN HYDROCHLORIDE
     Indication: Benign prostatic hyperplasia
     Dosage: UNK
     Dates: start: 20240422
  6. EMPAGLIFLOZIN [Concomitant]
     Active Substance: EMPAGLIFLOZIN
     Indication: Dilated cardiomyopathy
     Dosage: UNK
     Dates: start: 20220128
  7. SACUBITRIL\VALSARTAN [Concomitant]
     Active Substance: SACUBITRIL\VALSARTAN
     Indication: Dilated cardiomyopathy
     Dosage: UNK
     Dates: start: 20221230
  8. ALDACTONE [Concomitant]
     Active Substance: SPIRONOLACTONE
     Indication: Dilated cardiomyopathy
     Dosage: UNK
     Dates: start: 20221230
  9. BISOPROLOL [Concomitant]
     Active Substance: BISOPROLOL
     Indication: Dilated cardiomyopathy
     Dosage: UNK
     Dates: start: 20221230
  10. CARBOPLATIN [Suspect]
     Active Substance: CARBOPLATIN
     Indication: Transitional cell carcinoma
     Dosage: 240 MG D1 EVERY 21 DAYS
     Dates: start: 20240416, end: 20240604
  11. CARBOPLATIN [Suspect]
     Active Substance: CARBOPLATIN
     Indication: Transitional cell carcinoma
     Dosage: 240 MG D1 EVERY 21 DAYS
     Dates: start: 20240604
  12. GEMCITABINE [Suspect]
     Active Substance: GEMCITABINE
     Indication: Transitional cell carcinoma
     Dosage: 1300 MG D1 AND D8 EVERY 21 DAYS
     Dates: start: 20240416, end: 20240611

REACTIONS (3)
  - Neutropenic sepsis [Recovered/Resolved]
  - Staphylococcal bacteraemia [Recovered/Resolved]
  - Staphylococcal skin infection [Recovered/Resolved]

NARRATIVE: CASE EVENT DATE: 20240503
